FAERS Safety Report 24291460 (Version 1)
Quarter: 2024Q3

REPORT INFORMATION
  Report Type: Spontaneous
  Country: US (occurrence: None)
  Receive Date: 20240906
  Receipt Date: 20240906
  Transmission Date: 20241017
  Serious: No
  Sender: DOMPE FARMACEUTICI
  Company Number: US-FARMAPROD-202308-202309-2714

PATIENT
  Age: 38 Year
  Sex: Male

DRUGS (4)
  1. OXERVATE [Suspect]
     Active Substance: CENEGERMIN-BKBJ
     Indication: Neurotrophic keratopathy
     Route: 047
     Dates: start: 20230817
  2. PREDNISOLONE [Concomitant]
     Active Substance: PREDNISOLONE
  3. OFLOXACIN [Concomitant]
     Active Substance: OFLOXACIN
  4. PROLENSA [Concomitant]
     Active Substance: BROMFENAC SODIUM

REACTIONS (1)
  - Photophobia [Unknown]

NARRATIVE: CASE EVENT DATE: 20230801
